FAERS Safety Report 21027440 (Version 1)
Quarter: 2022Q2

REPORT INFORMATION
  Report Type: Spontaneous
  Country: FR (occurrence: FR)
  Receive Date: 20220630
  Receipt Date: 20220630
  Transmission Date: 20220721
  Serious: Yes (Life-Threatening, Other)
  Sender: FDA-Public Use
  Company Number: FR-SA-SAC20220622000539

PATIENT
  Age: 41 Year
  Sex: Female
  Weight: 60 kg

DRUGS (4)
  1. METHOTREXATE [Suspect]
     Active Substance: METHOTREXATE
     Indication: Asthma
     Dosage: 10 MILLIGRAM
     Route: 030
  2. ATARAX [Suspect]
     Active Substance: HYDROXYZINE HYDROCHLORIDE
     Indication: Product used for unknown indication
     Dosage: 25 MILLIGRAM
     Route: 048
     Dates: end: 20220128
  3. DUPIXENT [Suspect]
     Active Substance: DUPILUMAB
     Indication: Product used for unknown indication
     Dosage: 300 MILLIGRAM, BIWEEKLY, (300 MG, QOW)
     Route: 058
     Dates: start: 20220128, end: 20220225
  4. XOLAIR [Suspect]
     Active Substance: OMALIZUMAB
     Indication: Asthma
     Dosage: UNK
     Route: 065

REACTIONS (6)
  - Anaphylactic reaction [Recovered/Resolved]
  - Pruritus [Recovered/Resolved]
  - Inflammation [Recovered/Resolved]
  - Oedema [Recovered/Resolved]
  - Skin plaque [Recovered/Resolved]
  - Erythema [Recovered/Resolved]

NARRATIVE: CASE EVENT DATE: 20220128
